FAERS Safety Report 10018694 (Version 1)
Quarter: 2014Q1

REPORT INFORMATION
  Report Type: Spontaneous
  Country: US (occurrence: US)
  Receive Date: 20140318
  Receipt Date: 20140318
  Transmission Date: 20141002
  Serious: No
  Sender: FDA-Public Use
  Company Number: US-009507513-1402USA012879

PATIENT
  Age: 67 Year
  Sex: Male
  Weight: 68.93 kg

DRUGS (2)
  1. PRINIVIL [Suspect]
     Dosage: 20 MG DAILY
     Route: 048
  2. ENOXAPARIN SODIUM [Suspect]

REACTIONS (1)
  - Haematoma [Recovering/Resolving]
